FAERS Safety Report 5762829-7 (Version None)
Quarter: 2008Q2

REPORT INFORMATION
  Report Type: 
  Country: None (occurrence: None)
  Receive Date: 20080609
  Receipt Date: 20080606
  Transmission Date: 20081010
  Serious: Yes (Other)
  Sender: FDA-Public Use
  Company Number: GB-BRISTOL-MYERS SQUIBB COMPANY-14218192

PATIENT
  Age: 31 Year
  Sex: Male
  Weight: 65 kg

DRUGS (3)
  1. ABILIFY [Suspect]
     Indication: PSYCHOTIC DISORDER
     Route: 048
     Dates: start: 20080418, end: 20080425
  2. MIRTAZAPINE [Concomitant]
     Indication: POST-TRAUMATIC STRESS DISORDER
     Route: 048
     Dates: start: 20071129
  3. OLANZAPINE [Concomitant]
     Indication: PSYCHOTIC DISORDER
     Route: 048
     Dates: start: 20080410, end: 20080415

REACTIONS (3)
  - EYE PAIN [None]
  - UVEITIS [None]
  - VISUAL ACUITY REDUCED [None]
